FAERS Safety Report 23941116 (Version 2)
Quarter: 2024Q2

REPORT INFORMATION
  Report Type: Report from Study
  Country: TN (occurrence: TN)
  Receive Date: 20240605
  Receipt Date: 20240608
  Transmission Date: 20240715
  Serious: Yes (Hospitalization)
  Sender: FDA-Public Use
  Company Number: TN-ABBVIE-5786864

PATIENT
  Age: 42 Year
  Sex: Male

DRUGS (3)
  1. HUMIRA [Suspect]
     Active Substance: ADALIMUMAB
     Indication: Crohn^s disease
     Dosage: FORM STRENGTH: 40MG
     Route: 058
     Dates: start: 20200601, end: 20220317
  2. HUMIRA [Suspect]
     Active Substance: ADALIMUMAB
     Dosage: FORM STRENGTH: 40MG?STOP DATE TEXT: NOVEMBER OR DECEMBER 2023
     Route: 058
     Dates: start: 20220425, end: 202311
  3. HUMIRA [Suspect]
     Active Substance: ADALIMUMAB
     Dosage: FORM STRENGTH: 40MG, START DATE TEXT: NOVEMBER OR DECEMBER 2023
     Route: 058
     Dates: start: 202311, end: 202404

REACTIONS (3)
  - Intestinal stenosis [Recovering/Resolving]
  - Therapeutic product effect decreased [Unknown]
  - Inflammation [Unknown]
